FAERS Safety Report 7700201-0 (Version None)
Quarter: 2011Q3

REPORT INFORMATION
  Report Type: 
  Country: None (occurrence: None)
  Receive Date: 20110822
  Receipt Date: 20110812
  Transmission Date: 20111222
  Serious: Yes (Other)
  Sender: FDA-Public Use
  Company Number: US-JNJFOC-20110608818

PATIENT
  Sex: Male

DRUGS (4)
  1. RISPERDAL [Suspect]
     Indication: DISTURBANCE IN SOCIAL BEHAVIOUR
     Route: 048
     Dates: start: 20071001, end: 20091101
  2. RISPERDAL [Suspect]
     Indication: BIPOLAR DISORDER
     Route: 048
     Dates: start: 20071001, end: 20091101
  3. ABILIFY [Concomitant]
     Route: 065
  4. RISPERDAL [Suspect]
     Indication: ATTENTION DEFICIT/HYPERACTIVITY DISORDER
     Route: 048
     Dates: start: 20071001, end: 20091101

REACTIONS (4)
  - SUICIDAL IDEATION [None]
  - GALACTORRHOEA [None]
  - BREAST PAIN [None]
  - GYNAECOMASTIA [None]
